FAERS Safety Report 8529106-2 (Version None)
Quarter: 2012Q3

REPORT INFORMATION
  Report Type: 
  Country: None (occurrence: None)
  Receive Date: 20120723
  Receipt Date: 20120712
  Transmission Date: 20120928
  Serious: No
  Sender: FDA-Public Use
  Company Number: US-009507513-2012SP017914

PATIENT

DRUGS (3)
  1. PAXIL [Concomitant]
  2. PEG-INTRON [Suspect]
     Indication: HEPATITIS C
     Dosage: 120 A?G, QW
     Dates: start: 20120101
  3. RIBAVIRIN [Suspect]

REACTIONS (5)
  - INSOMNIA [None]
  - FATIGUE [None]
  - APPLICATION SITE REACTION [None]
  - ASTHENIA [None]
  - INFLUENZA LIKE ILLNESS [None]
